FAERS Safety Report 9881582 (Version 1)
Quarter: 2014Q1

REPORT INFORMATION
  Report Type: Spontaneous
  Country: US (occurrence: None)
  Receive Date: 20140205
  Receipt Date: 20140205
  Transmission Date: 20141002
  Serious: Yes (Death)
  Sender: FDA-Public Use
  Company Number: IMP_07190_2014

PATIENT
  Age: 43 Year
  Sex: Female

DRUGS (3)
  1. BUPROPION [Suspect]
     Indication: PRODUCT USED FOR UNKNOWN INDICATION
     Route: 048
  2. FLECAINIDE [Suspect]
     Indication: PRODUCT USED FOR UNKNOWN INDICATION
     Route: 048
  3. ETHANOL [Suspect]
     Dosage: AMOUNT UNKNOWN
     Route: 048

REACTIONS (10)
  - Poisoning [None]
  - Exposure via ingestion [None]
  - Completed suicide [None]
  - Vomiting [None]
  - Cardiac arrest [None]
  - Ventricular tachycardia [None]
  - Ventricular fibrillation [None]
  - Pulseless electrical activity [None]
  - Pulmonary congestion [None]
  - Toxicity to various agents [None]
